FAERS Safety Report 9166745 (Version 1)
Quarter: 2013Q1

REPORT INFORMATION
  Report Type: Spontaneous
  Country: US (occurrence: US)
  Receive Date: 20130315
  Receipt Date: 20130315
  Transmission Date: 20140127
  Serious: No
  Sender: FDA-Public Use
  Company Number: US-009507513-1303USA004164

PATIENT
  Sex: Male

DRUGS (7)
  1. RIBAVIRIN [Suspect]
     Indication: CHRONIC HEPATITIS C
     Dosage: 800 MG DAILY IN DIVIDED DOSES
     Route: 048
     Dates: start: 20120718
  2. BOCEPREVIR [Suspect]
     Indication: CHRONIC HEPATITIS C
     Route: 048
  3. PEGASYS [Suspect]
     Indication: CHRONIC HEPATITIS C
     Dosage: 180 MICROGRAM, QW
     Dates: start: 20120718
  4. VENTOLIN (ALBUTEROL SULFATE) [Concomitant]
  5. ^LOMAX^ [Concomitant]
  6. TRAMADOL HYDROCHLORIDE [Concomitant]
  7. CLONIDINE [Concomitant]

REACTIONS (10)
  - Fatigue [Unknown]
  - Diarrhoea [Recovered/Resolved]
  - Hyperhidrosis [Unknown]
  - Headache [Unknown]
  - Dizziness [Unknown]
  - Injection site rash [Unknown]
  - Oropharyngeal pain [Unknown]
  - Stomatitis [Unknown]
  - Tongue discolouration [Unknown]
  - Aphagia [Unknown]
